FAERS Safety Report 6584229-2 (Version None)
Quarter: 2010Q1

REPORT INFORMATION
  Report Type: 
  Country: None (occurrence: None)
  Receive Date: 20100216
  Receipt Date: 20100111
  Transmission Date: 20100710
  Serious: No
  Sender: FDA-Public Use
  Company Number: US-ABBOTT-10P-163-0618554-00

PATIENT
  Sex: Male
  Weight: 77.18 kg

DRUGS (9)
  1. SIMCOR [Suspect]
     Indication: BLOOD CHOLESTEROL INCREASED
     Dosage: 500/20MG EVERY MORNING
     Route: 048
     Dates: start: 20090101
  2. SIMCOR [Suspect]
     Dosage: 500/20MG EVERY MORNING
     Route: 048
     Dates: start: 20100101
  3. LOTREL [Concomitant]
     Indication: DRUG USE FOR UNKNOWN INDICATION
  4. METOPROLOL TARTRATE [Concomitant]
     Indication: DRUG USE FOR UNKNOWN INDICATION
  5. RANITIDINE [Concomitant]
     Indication: DRUG USE FOR UNKNOWN INDICATION
  6. ASPIRIN [Concomitant]
     Indication: DRUG USE FOR UNKNOWN INDICATION
  7. FISH OIL [Concomitant]
     Indication: DRUG USE FOR UNKNOWN INDICATION
  8. VITAMIN D [Concomitant]
     Indication: DRUG USE FOR UNKNOWN INDICATION
  9. VITAMIN E [Concomitant]
     Indication: DRUG USE FOR UNKNOWN INDICATION

REACTIONS (1)
  - FLUSHING [None]
